FAERS Safety Report 23437497 (Version 12)
Quarter: 2025Q4

REPORT INFORMATION
  Report Type: Report from Study
  Country: US (occurrence: US)
  Receive Date: 20240124
  Receipt Date: 20251224
  Transmission Date: 20260118
  Serious: No
  Sender: PFIZER
  Company Number: US-PFIZER INC-PV202300131611

PATIENT
  Age: 77 Year
  Sex: Female

DRUGS (5)
  1. IBRANCE [Suspect]
     Active Substance: PALBOCICLIB
     Indication: Breast cancer female
     Dosage: 125 MG
     Route: 048
  2. IBRANCE [Suspect]
     Active Substance: PALBOCICLIB
     Dosage: 100 MG, CYCLIC (TAKE ONE TABLET FOR 21 DAYS)
     Route: 048
  3. IBRANCE [Suspect]
     Active Substance: PALBOCICLIB
     Dosage: 75 MG, CYCLIC (TAKE ONE TABLET DAILY FOR 21 DAYS THEN 7 DAYS OFF)
     Route: 048
  4. IBRANCE [Suspect]
     Active Substance: PALBOCICLIB
     Dosage: 75 MG, CYCLIC (FOR 21 DAYS TAKE ON DAYS 1-21 OF EACH)
     Route: 048
     Dates: end: 20250418
  5. LETROZOLE [Concomitant]
     Active Substance: LETROZOLE
     Indication: Breast cancer metastatic
     Dosage: UNK, (DAY 30, CYCLE 11)
     Route: 048

REACTIONS (3)
  - Accident [Unknown]
  - Fatigue [Unknown]
  - Bronchitis [Unknown]

NARRATIVE: CASE EVENT DATE: 20240101
